FAERS Safety Report 7017796-5 (Version None)
Quarter: 2010Q3

REPORT INFORMATION
  Report Type: 
  Country: None (occurrence: None)
  Receive Date: 20100927
  Receipt Date: 20100927
  Transmission Date: 20110219
  Serious: Yes (Other)
  Sender: FDA-Public Use
  Company Number: None

PATIENT
  Sex: Male

DRUGS (2)
  1. PRIMIDONE [Suspect]
     Indication: CONVULSION
     Dosage: 250 MG 1 BID PO
     Route: 048
     Dates: start: 20090701, end: 20100601
  2. PRIMIDONE [Suspect]
     Indication: ENCEPHALOPATHY
     Dosage: 250 MG 1 BID PO
     Route: 048
     Dates: start: 20090701, end: 20100601

REACTIONS (3)
  - AFFECT LABILITY [None]
  - IRRITABILITY [None]
  - MENTAL STATUS CHANGES [None]
